FAERS Safety Report 8915963 (Version 6)
Quarter: 2013Q2

REPORT INFORMATION
  Report Type: Spontaneous
  Country: US (occurrence: US)
  Receive Date: 20121119
  Receipt Date: 20130530
  Transmission Date: 20140414
  Serious: Yes (Death, Hospitalization)
  Sender: FDA-Public Use
  Company Number: US-GLAXOSMITHKLINE-A0974252A

PATIENT
  Age: 62 Year
  Sex: Female
  Weight: 80.3 kg

DRUGS (4)
  1. FLOLAN [Suspect]
     Indication: PULMONARY ARTERIAL HYPERTENSION
     Dosage: 41.5NGKM SEE DOSAGE TEXT
     Route: 042
     Dates: start: 20110310, end: 20130420
  2. REVATIO [Suspect]
     Indication: PULMONARY ARTERIAL HYPERTENSION
     Dosage: 20MG PER DAY
     Route: 048
     Dates: start: 201203
  3. WARFARIN [Concomitant]
     Indication: PULMONARY ARTERIAL HYPERTENSION
     Dosage: 5MG PER DAY
     Route: 048
  4. LASIX [Concomitant]

REACTIONS (10)
  - Pancreatitis [Unknown]
  - Pulmonary embolism [Fatal]
  - Epistaxis [Recovered/Resolved]
  - Gastroenteritis viral [Unknown]
  - Diarrhoea [Not Recovered/Not Resolved]
  - Vomiting [Not Recovered/Not Resolved]
  - Deep vein thrombosis [Unknown]
  - Hypoxia [Unknown]
  - Respiratory failure [Unknown]
  - Shock [Unknown]
